FAERS Safety Report 6718915-8 (Version None)
Quarter: 2010Q2

REPORT INFORMATION
  Report Type: 
  Country: None (occurrence: None)
  Receive Date: 20100511
  Receipt Date: 20091110
  Transmission Date: 20101027
  Serious: No
  Sender: FDA-Public Use
  Company Number: 2009BI024061

PATIENT
  Age: 52 Year
  Sex: Male

DRUGS (1)
  1. TYSABRI [Suspect]
     Indication: MULTIPLE SCLEROSIS
     Route: 042
     Dates: start: 20090717

REACTIONS (5)
  - EYE PAIN [None]
  - FACIAL PAIN [None]
  - GROIN PAIN [None]
  - PAIN [None]
  - PAIN IN EXTREMITY [None]
